FAERS Safety Report 8017699-3 (Version None)
Quarter: 2012Q1

REPORT INFORMATION
  Report Type: 
  Country: None (occurrence: None)
  Receive Date: 20120103
  Receipt Date: 20111221
  Transmission Date: 20120608
  Serious: Yes (Other)
  Sender: FDA-Public Use
  Company Number: CA-JNJFOC-20111212226

PATIENT
  Sex: Female
  Weight: 63.2 kg

DRUGS (9)
  1. IMURAN [Concomitant]
     Route: 048
  2. ACETAMINOPHEN [Concomitant]
     Route: 048
  3. BENADRYL [Concomitant]
     Route: 048
  4. ECLAR LOTION (DEPRODONE PROPIONATE) [Concomitant]
  5. REMICADE [Suspect]
     Indication: CROHN'S DISEASE
     Route: 042
     Dates: start: 20110922
  6. VALACYCLOVIR [Concomitant]
  7. NASONEX [Concomitant]
     Dosage: AS NEEDED
  8. REMICADE [Suspect]
     Route: 042
     Dates: start: 20111221
  9. BIRTH CONTROL PILL [Concomitant]

REACTIONS (2)
  - PRESYNCOPE [None]
  - INFUSION RELATED REACTION [None]
